FAERS Safety Report 8089783-X (Version None)
Quarter: 2012Q1

REPORT INFORMATION
  Report Type: 
  Country: None (occurrence: None)
  Receive Date: 20120128
  Receipt Date: 20110714
  Transmission Date: 20120608
  Serious: No
  Sender: FDA-Public Use
  Company Number: US-ABBOTT-11P-163-0838723-00

PATIENT
  Age: 50 Year
  Sex: Female

DRUGS (5)
  1. PREDNISONE TAB [Concomitant]
     Indication: CROHN'S DISEASE
  2. UNKNOWN MEDICAITON [Concomitant]
     Indication: HYPERSENSITIVITY
     Dosage: CVS OVER THE COUNTER
  3. HUMIRA [Suspect]
     Indication: CROHN'S DISEASE
     Dates: start: 20110301
  4. MERCAPTOPURINE [Concomitant]
     Indication: CROHN'S DISEASE
  5. UNKNOWN MEDICAITON [Concomitant]
     Indication: SEASONAL ALLERGY

REACTIONS (1)
  - ARTHRALGIA [None]
